FAERS Safety Report 6612129-8 (Version None)
Quarter: 2010Q1

REPORT INFORMATION
  Report Type: 
  Country: None (occurrence: None)
  Receive Date: 20100219
  Receipt Date: 20090622
  Transmission Date: 20100710
  Serious: Yes (Other)
  Sender: FDA-Public Use
  Company Number: 640061

PATIENT
  Age: 2 Year
  Sex: Male
  Weight: 16 kg

DRUGS (6)
  1. KLONOPIN [Suspect]
     Indication: CONVULSION
     Dosage: ORAL
     Route: 048
  2. KLONOPIN [Suspect]
     Indication: CONVULSION
     Dosage: 0.125 MG 2 PER 1 DAY ORAL
     Route: 048
     Dates: start: 20080428
  3. KEPPRA [Concomitant]
  4. TEGRETOL [Concomitant]
  5. OXCARBAZEPINE [Concomitant]
  6. LAMOTRIGINE [Concomitant]

REACTIONS (2)
  - CONVULSION [None]
  - DRUG INEFFECTIVE [None]
